FAERS Safety Report 7426918-3 (Version None)
Quarter: 2011Q2

REPORT INFORMATION
  Report Type: 
  Country: None (occurrence: None)
  Receive Date: 20110420
  Receipt Date: 20110414
  Transmission Date: 20111010
  Serious: Yes (Other)
  Sender: FDA-Public Use
  Company Number: US-B.I. PHARMACEUTICALS,INC./RIDGEFIELD-2010-BP-15015BP

PATIENT
  Sex: Female

DRUGS (6)
  1. SPIRIVA [Suspect]
     Indication: ASTHMA
  2. SPIRIVA [Suspect]
     Indication: EMPHYSEMA
     Dosage: 18 MCG
     Route: 055
     Dates: start: 20071001
  3. SPIRIVA [Suspect]
     Indication: CHRONIC OBSTRUCTIVE PULMONARY DISEASE
  4. UNSPECIFIED STEROIDS [Concomitant]
     Indication: PROPHYLAXIS
  5. UNSPECIFIED STEROIDS [Concomitant]
     Indication: CHEMOTHERAPY
  6. UNSPECIFIED VITAMINS [Concomitant]
     Indication: SUPPLEMENTATION THERAPY

REACTIONS (6)
  - BREAST CANCER STAGE IV [None]
  - DYSPHONIA [None]
  - HYPERTENSION [None]
  - NAUSEA [None]
  - GASTROOESOPHAGEAL REFLUX DISEASE [None]
  - INCREASED UPPER AIRWAY SECRETION [None]
